FAERS Safety Report 9441476 (Version 3)
Quarter: 2013Q3

REPORT INFORMATION
  Report Type: Spontaneous
  Country: JP (occurrence: JP)
  Receive Date: 20130805
  Receipt Date: 20130906
  Transmission Date: 20140515
  Serious: Yes (Hospitalization)
  Sender: FDA-Public Use
  Company Number: JP-ROCHE-1257328

PATIENT
  Age: 42 Year
  Sex: Female
  Weight: 52.07 kg

DRUGS (8)
  1. XOLAIR [Suspect]
     Indication: ASTHMA
     Route: 058
     Dates: start: 20130730, end: 20130730
  2. SINGULAIR [Concomitant]
     Route: 065
     Dates: start: 20080501
  3. XYZAL [Concomitant]
     Route: 065
     Dates: start: 20080501
  4. TAKEPRON [Concomitant]
     Route: 065
     Dates: start: 20080501
  5. LASIX [Concomitant]
     Route: 065
     Dates: start: 20080501
  6. SPIRIVA [Concomitant]
  7. HOKUNALIN [Concomitant]
     Route: 065
     Dates: start: 20080501
  8. PULMICORT [Concomitant]
     Route: 065
     Dates: start: 20080501

REACTIONS (1)
  - Anaphylactic reaction [Recovered/Resolved]
